FAERS Safety Report 23471045 (Version 1)
Quarter: 2024Q1

REPORT INFORMATION
  Report Type: Spontaneous
  Country: CA (occurrence: CA)
  Receive Date: 20240202
  Receipt Date: 20240202
  Transmission Date: 20240410
  Serious: Yes (Other)
  Sender: FDA-Public Use
  Company Number: CA-MYLANLABS-2024M1005272

PATIENT

DRUGS (1)
  1. LATANOPROST [Suspect]
     Active Substance: LATANOPROST
     Indication: Glaucoma
     Dosage: UNK
     Route: 047

REACTIONS (5)
  - Alopecia [Unknown]
  - Diarrhoea [Unknown]
  - Diverticulum intestinal [Unknown]
  - Drug intolerance [Unknown]
  - Weight decreased [Unknown]
